FAERS Safety Report 4745569-2 (Version None)
Quarter: 2005Q3

REPORT INFORMATION
  Report Type: 
  Country: None (occurrence: None)
  Receive Date: 20050810
  Receipt Date: 20050729
  Transmission Date: 20060218
  Serious: Yes (Other)
  Sender: FDA-Public Use
  Company Number: 05-0088TG

PATIENT
  Age: 67 Year
  Sex: Female

DRUGS (2)
  1. TRIGLIDE [Suspect]
     Indication: HYPERCHOLESTEROLAEMIA
     Dosage: 160 MG, ONCE, ORAL
     Route: 048
     Dates: start: 20050728
  2. FAMVIR [Concomitant]

REACTIONS (19)
  - ABDOMINAL DISTENSION [None]
  - BACK PAIN [None]
  - CONDITION AGGRAVATED [None]
  - DIZZINESS [None]
  - GINGIVAL PAIN [None]
  - HEADACHE [None]
  - HERPES SIMPLEX [None]
  - HYPERHIDROSIS [None]
  - HYPOAESTHESIA [None]
  - LIP DISORDER [None]
  - MUSCULOSKELETAL STIFFNESS [None]
  - NASAL CONGESTION [None]
  - OEDEMA PERIPHERAL [None]
  - PAIN [None]
  - PALPITATIONS [None]
  - PARAESTHESIA [None]
  - POLLAKIURIA [None]
  - TONGUE DISORDER [None]
  - VISUAL DISTURBANCE [None]
